FAERS Safety Report 4728548-0 (Version None)
Quarter: 2005Q3

REPORT INFORMATION
  Report Type: 
  Country: None (occurrence: None)
  Receive Date: 20050727
  Receipt Date: 20050714
  Transmission Date: 20060218
  Serious: Yes (Hospitalization)
  Sender: FDA-Public Use
  Company Number: 2005BI011433

PATIENT
  Age: 59 Year
  Sex: Female

DRUGS (17)
  1. AVONEX [Suspect]
     Indication: MULTIPLE SCLEROSIS
     Dosage: 30 UG;QW IM
     Route: 030
     Dates: start: 20000518, end: 20031103
  2. AVONEX [Suspect]
     Indication: MULTIPLE SCLEROSIS
     Dosage: 30 UG;QW; IM
     Route: 030
     Dates: start: 20031110
  3. DYAZIDE [Concomitant]
  4. KLONOPIN [Concomitant]
  5. LEXAPRO [Concomitant]
  6. SEROQUEL [Concomitant]
  7. CLARITIN [Concomitant]
  8. LORTAB [Concomitant]
  9. WELLBUTRIN [Concomitant]
  10. MIRAPEX [Concomitant]
  11. CALCIUM WITH VITAMIN D [Concomitant]
  12. OMEGA 3 [Concomitant]
  13. MULTI-VITAMIN [Concomitant]
  14. ASPIRIN [Concomitant]
  15. IBUPROFEN [Concomitant]
  16. MORPHINE SULFATE [Concomitant]
  17. DETROL A [Concomitant]

REACTIONS (10)
  - ADHESION [None]
  - BILIARY DILATATION [None]
  - CHOLECYSTITIS [None]
  - CHOLELITHIASIS [None]
  - CLOSTRIDIUM COLITIS [None]
  - COLON CANCER [None]
  - DEHYDRATION [None]
  - HYPERSENSITIVITY [None]
  - IRON DEFICIENCY ANAEMIA [None]
  - URINARY TRACT INFECTION [None]
